FAERS Safety Report 12058459 (Version 1)
Quarter: 2016Q1

REPORT INFORMATION
  Report Type: Spontaneous
  Country: US (occurrence: None)
  Receive Date: 20160209
  Receipt Date: 20160209
  Transmission Date: 20160526
  Serious: Yes (Other)
  Sender: FDA-Public Use
  Company Number: None

PATIENT
  Age: 30 Year
  Sex: Female

DRUGS (5)
  1. EMOQUETTE [Concomitant]
     Active Substance: DESOGESTREL\ETHINYL ESTRADIOL
  2. LORAZEPAM. [Concomitant]
     Active Substance: LORAZEPAM
  3. VIMPAT [Concomitant]
     Active Substance: LACOSAMIDE
  4. EQUETRO [Concomitant]
     Active Substance: CARBAMAZEPINE
  5. FYCOMPA [Suspect]
     Active Substance: PERAMPANEL
     Indication: SEIZURE
     Dates: start: 20151211, end: 20160106

REACTIONS (1)
  - Seizure [None]

NARRATIVE: CASE EVENT DATE: 20151211
